FAERS Safety Report 6206651-6 (Version None)
Quarter: 2009Q2

REPORT INFORMATION
  Report Type: 
  Country: None (occurrence: None)
  Receive Date: 20090528
  Receipt Date: 20090522
  Transmission Date: 20091009
  Serious: Yes (Hospitalization)
  Sender: FDA-Public Use
  Company Number: US-B.I. PHARMACEUTICALS,INC./RIDGEFIELD-2009-BP-06453BP

PATIENT
  Sex: Female

DRUGS (3)
  1. SPIRIVA [Suspect]
     Indication: ASTHMA
     Dosage: 18MCG
     Route: 055
     Dates: start: 20080801
  2. CARDIZEM [Concomitant]
     Indication: HYPERTENSION
  3. GLYBURIDE [Concomitant]
     Indication: DIABETES MELLITUS
     Dosage: 25MG
     Route: 048

REACTIONS (3)
  - ATRIAL FIBRILLATION [None]
  - COUGH [None]
  - SICK SINUS SYNDROME [None]
